FAERS Safety Report 7067793-9 (Version None)
Quarter: 2010Q4

REPORT INFORMATION
  Report Type: 
  Country: None (occurrence: None)
  Receive Date: 20101028
  Receipt Date: 20100818
  Transmission Date: 20110411
  Serious: No
  Sender: FDA-Public Use
  Company Number: A0877743A

PATIENT
  Age: 48 Year
  Sex: Male

DRUGS (1)
  1. SEREVENT [Suspect]
     Indication: PRODUCT USED FOR UNKNOWN INDICATION
     Dosage: 50MCG UNKNOWN
     Route: 055
     Dates: start: 20070411, end: 20100818

REACTIONS (3)
  - DRUG ADMINISTRATION ERROR [None]
  - OROPHARYNGEAL PAIN [None]
  - THROAT IRRITATION [None]
